FAERS Safety Report 4399412-4 (Version None)
Quarter: 2004Q3

REPORT INFORMATION
  Report Type: 
  Country: None (occurrence: None)
  Receive Date: 20040712
  Receipt Date: 20040706
  Transmission Date: 20050211
  Serious: Yes (Hospitalization, Other)
  Sender: FDA-Public Use
  Company Number: 001914

PATIENT
  Age: 33 Year
  Sex: Female
  Weight: 54.4 kg

DRUGS (3)
  1. METHYLPREDNISOLONE [Suspect]
     Indication: SINUSITIS
     Dosage: AS DIRECTED, ORAL
     Route: 048
     Dates: start: 20040604, end: 20040605
  2. BACTRIM [Concomitant]
  3. BIRTH CONTROL PILL [Concomitant]

REACTIONS (8)
  - AMNESIA [None]
  - FRACTURED SACRUM [None]
  - LOWER LIMB FRACTURE [None]
  - PELVIC FRACTURE [None]
  - POLYTRAUMATISM [None]
  - PSYCHOTIC DISORDER [None]
  - ROAD TRAFFIC ACCIDENT [None]
  - UPPER LIMB FRACTURE [None]
